FAERS Safety Report 18941128 (Version 1)
Quarter: 2021Q1

REPORT INFORMATION
  Report Type: Report from Study
  Country: JP (occurrence: JP)
  Receive Date: 20210225
  Receipt Date: 20210225
  Transmission Date: 20210420
  Serious: Yes (Hospitalization)
  Sender: FDA-Public Use
  Company Number: JP-JNJFOC-A-CH2019-189409

PATIENT
  Age: 35 Year
  Sex: Female

DRUGS (29)
  1. OPSUMIT [Suspect]
     Active Substance: MACITENTAN
     Indication: PULMONARY ARTERIAL HYPERTENSION
     Dosage: 10 MG, QD
     Route: 048
     Dates: start: 20170124
  2. ADCIRCA [Concomitant]
     Active Substance: TADALAFIL
     Indication: PULMONARY ARTERIAL HYPERTENSION
     Route: 048
     Dates: start: 20101020
  3. LIXIANA [Concomitant]
     Active Substance: EDOXABAN TOSYLATE
     Indication: ATRIAL FIBRILLATION
     Route: 048
     Dates: start: 20171106, end: 20190227
  4. MINOMYCIN [Concomitant]
     Active Substance: MINOCYCLINE HYDROCHLORIDE
     Indication: DEVICE RELATED INFECTION
     Route: 048
     Dates: start: 20180627, end: 20180711
  5. WARFARIN [Concomitant]
     Active Substance: WARFARIN
     Indication: ATRIAL FIBRILLATION
     Route: 048
     Dates: start: 20170929, end: 20171025
  6. EPOPROSTENOL. [Concomitant]
     Active Substance: EPOPROSTENOL
     Indication: PULMONARY ARTERIAL HYPERTENSION
     Dosage: 14.2NG/KG/MIN
     Route: 042
     Dates: start: 20110802
  7. SLOW?K [Concomitant]
     Active Substance: POTASSIUM CHLORIDE
     Indication: HYPOKALAEMIA
     Route: 048
     Dates: start: 20171221
  8. CEFZON [Concomitant]
     Indication: DEVICE RELATED INFECTION
     Route: 048
     Dates: start: 20170628, end: 20170705
  9. BIOFERMIN R [Concomitant]
     Active Substance: DIETARY SUPPLEMENT\PROBIOTICS
  10. ALDACTONE A [Concomitant]
     Active Substance: SPIRONOLACTONE
     Indication: RIGHT VENTRICULAR FAILURE
     Route: 048
     Dates: start: 200203
  11. EPOPROSTENOL. [Concomitant]
     Active Substance: EPOPROSTENOL
     Indication: PULMONARY ARTERIAL HYPERTENSION
     Dosage: 15.1NG/KG/MIN
     Route: 042
  12. CEFZON [Concomitant]
     Indication: DEVICE RELATED INFECTION
     Route: 048
     Dates: start: 20170531, end: 20170606
  13. CEFZON [Concomitant]
     Indication: DEVICE RELATED INFECTION
     Route: 048
     Dates: start: 20180228, end: 20180304
  14. DIGOXIN. [Concomitant]
     Active Substance: DIGOXIN
     Indication: RIGHT VENTRICULAR FAILURE
     Route: 048
     Dates: start: 19900411, end: 20171025
  15. BIOFERMIN R [Concomitant]
     Active Substance: DIETARY SUPPLEMENT\PROBIOTICS
     Indication: PROPHYLAXIS AGAINST DIARRHOEA
     Route: 048
     Dates: start: 20170531, end: 20170606
  16. HALFDIGOXIN [Concomitant]
     Active Substance: DIGOXIN
     Indication: HYPOKALAEMIA
     Route: 048
     Dates: start: 20171026
  17. BISOPROLOL [Concomitant]
     Active Substance: BISOPROLOL
     Indication: ATRIAL FIBRILLATION
     Route: 048
     Dates: start: 20180125, end: 20180529
  18. FERROMIA [Concomitant]
     Active Substance: SODIUM FERROUS CITRATE
     Route: 048
  19. CEFZON [Concomitant]
     Indication: DEVICE RELATED INFECTION
     Route: 048
     Dates: start: 20180328, end: 20180404
  20. CEFAZOLIN SODIUM. [Concomitant]
     Active Substance: CEFAZOLIN SODIUM
     Indication: DEVICE RELATED INFECTION
     Route: 042
     Dates: start: 20180806, end: 20180823
  21. WARFARIN [Concomitant]
     Active Substance: WARFARIN
     Indication: ATRIAL FIBRILLATION
     Route: 048
     Dates: start: 20171026, end: 20171106
  22. BIOFERMIN R [Concomitant]
     Active Substance: DIETARY SUPPLEMENT\PROBIOTICS
     Indication: PROPHYLAXIS AGAINST DIARRHOEA
     Route: 048
     Dates: start: 20170315, end: 20170321
  23. MINOMYCIN [Concomitant]
     Active Substance: MINOCYCLINE HYDROCHLORIDE
     Indication: DEVICE RELATED INFECTION
     Route: 048
     Dates: start: 20180530, end: 20180612
  24. OXYGEN. [Concomitant]
     Active Substance: OXYGEN
     Dosage: DOSE UNKNOWN
     Route: 055
  25. FUROSEMIDE. [Concomitant]
     Active Substance: FUROSEMIDE
     Indication: RIGHT VENTRICULAR FAILURE
     Route: 048
     Dates: start: 19900411
  26. EPOPROSTENOL. [Concomitant]
     Active Substance: EPOPROSTENOL
     Indication: PULMONARY ARTERIAL HYPERTENSION
     Dosage: 16NG/KG/MIN
     Route: 042
  27. CEFZON [Concomitant]
     Indication: DEVICE RELATED INFECTION
     Route: 048
     Dates: start: 20170315, end: 20170321
  28. MINOCYCLINE HYDROCHLORIDE. [Concomitant]
     Active Substance: MINOCYCLINE HYDROCHLORIDE
     Indication: DEVICE RELATED INFECTION
     Route: 042
     Dates: start: 20180812, end: 20180823
  29. WARFARIN [Concomitant]
     Active Substance: WARFARIN
     Indication: ATRIAL FIBRILLATION
     Route: 048
     Dates: start: 20170901, end: 20170930

REACTIONS (4)
  - Atrial fibrillation [Recovered/Resolved]
  - Cardiac ablation [Recovered/Resolved]
  - Cardioversion [Recovered/Resolved]
  - Device related infection [Recovered/Resolved]

NARRATIVE: CASE EVENT DATE: 20170220
